FAERS Safety Report 6256277-3 (Version None)
Quarter: 2009Q2

REPORT INFORMATION
  Report Type: 
  Country: None (occurrence: None)
  Receive Date: 20090630
  Receipt Date: 20090630
  Transmission Date: 20091009
  Serious: Yes (Hospitalization, Disabling)
  Sender: FDA-Public Use
  Company Number: None

PATIENT
  Age: 83 Year
  Sex: Male
  Weight: 65.318 kg

DRUGS (2)
  1. RANEXA [Suspect]
     Indication: CARDIAC DISORDER
     Dosage: 1,000MGS TWICE A DAY PO
     Route: 048
     Dates: start: 20090424, end: 20090627
  2. RANEXA [Suspect]
     Indication: HYPERTENSION
     Dosage: 1,000MGS TWICE A DAY PO
     Route: 048
     Dates: start: 20090424, end: 20090627

REACTIONS (5)
  - BLOOD PRESSURE INCREASED [None]
  - DIZZINESS [None]
  - HEADACHE [None]
  - VISION BLURRED [None]
  - VOMITING [None]
